FAERS Safety Report 15402197 (Version 1)
Quarter: 2018Q3

REPORT INFORMATION
  Report Type: Spontaneous
  Country: SE (occurrence: SE)
  Receive Date: 20180919
  Receipt Date: 20180919
  Transmission Date: 20181010
  Serious: Yes (Other)
  Sender: FDA-Public Use
  Company Number: SE-PFIZER INC-2018375430

PATIENT
  Age: 76 Year
  Sex: Female

DRUGS (2)
  1. BEHEPAN [HYDROXOCOBALAMIN ACETATE] [Concomitant]
     Dates: start: 20180801, end: 20180801
  2. ZOLEDRONIC ACID [Suspect]
     Active Substance: ZOLEDRONIC ACID
     Indication: OSTEOPOROSIS
     Dosage: UNK
     Dates: start: 20180801, end: 20180801

REACTIONS (2)
  - Anuria [Not Recovered/Not Resolved]
  - Oliguria [Not Recovered/Not Resolved]

NARRATIVE: CASE EVENT DATE: 20180813
